FAERS Safety Report 5354618-2 (Version None)
Quarter: 2007Q2

REPORT INFORMATION
  Report Type: 
  Country: None (occurrence: None)
  Receive Date: 20070611
  Receipt Date: 20070529
  Transmission Date: 20071010
  Serious: Yes (Other)
  Sender: FDA-Public Use
  Company Number: PHFR2007GB01746

PATIENT
  Sex: Female

DRUGS (2)
  1. METROGEL [Suspect]
     Indication: ROSACEA
     Dosage: 0.75%, TOPICAL
     Route: 061
     Dates: start: 20070418, end: 20070418
  2. METRONIDAZOLE [Suspect]
     Dosage: ORAL
     Route: 048

REACTIONS (6)
  - ABASIA [None]
  - DIZZINESS [None]
  - DRUG HYPERSENSITIVITY [None]
  - DYSPNOEA [None]
  - GAIT DISTURBANCE [None]
  - PALPITATIONS [None]
